FAERS Safety Report 5527717-X (Version None)
Quarter: 2007Q4

REPORT INFORMATION
  Report Type: 
  Country: None (occurrence: None)
  Receive Date: 20071123
  Receipt Date: 20071113
  Transmission Date: 20080405
  Serious: Yes (Life-Threatening, Hospitalization)
  Sender: FDA-Public Use
  Company Number: CLOF-10759

PATIENT
  Age: 20 Year
  Sex: Male
  Weight: 53.6 kg

DRUGS (13)
  1. CLOFARABINE [Suspect]
     Indication: ACUTE LYMPHOCYTIC LEUKAEMIA
     Dosage: 68 MG QD IV
     Route: 042
     Dates: start: 20071101, end: 20071104
  2. ETOPOSIDE [Suspect]
     Indication: ACUTE LYMPHOCYTIC LEUKAEMIA
     Dosage: 170 MG QD IV
     Route: 042
     Dates: start: 20071101, end: 20071104
  3. CYCLOPHOSPHAMIDE [Suspect]
     Indication: ACUTE LYMPHOCYTIC LEUKAEMIA
     Dosage: 748 MG QD IV
     Route: 042
     Dates: start: 20071101, end: 20071104
  4. ACETAMINOPHEN [Concomitant]
  5. ACYCLOVIR [Concomitant]
  6. ALLOPURINOL [Concomitant]
  7. CEFEPIME [Concomitant]
  8. BENADRYL [Concomitant]
  9. DRONABINOL [Concomitant]
  10. NEUPOGEN [Concomitant]
  11. PANTOPRAZOLE SODIUM [Concomitant]
  12. POTASSIUM PHOSPHATES [Concomitant]
  13. VANCOMYCIN [Concomitant]

REACTIONS (12)
  - ALANINE AMINOTRANSFERASE INCREASED [None]
  - ASPARTATE AMINOTRANSFERASE INCREASED [None]
  - FEBRILE NEUTROPENIA [None]
  - HYPERBILIRUBINAEMIA [None]
  - INFECTION [None]
  - LUNG INFILTRATION [None]
  - PLEURAL EFFUSION [None]
  - PNEUMONIA [None]
  - PULMONARY HAEMORRHAGE [None]
  - PULMONARY OEDEMA [None]
  - SPLENOMEGALY [None]
  - WHITE BLOOD CELL COUNT DECREASED [None]
